FAERS Safety Report 6194539-9 (Version None)
Quarter: 2009Q2

REPORT INFORMATION
  Report Type: 
  Country: None (occurrence: None)
  Receive Date: 20090519
  Receipt Date: 20071211
  Transmission Date: 20091009
  Serious: Yes (Hospitalization, Other)
  Sender: FDA-Public Use
  Company Number: US-ASTRAZENECA-2006UW22724

PATIENT
  Age: 16536 Day
  Sex: Male
  Weight: 69.9 kg

DRUGS (24)
  1. SEROQUEL [Suspect]
     Indication: BIPOLAR DISORDER
     Route: 048
     Dates: start: 20040101, end: 20060301
  2. SEROQUEL [Suspect]
     Indication: DEPRESSION
     Route: 048
     Dates: start: 20040101, end: 20060301
  3. SEROQUEL [Suspect]
     Dosage: 25-400 MG
     Route: 048
     Dates: start: 20030415
  4. SEROQUEL [Suspect]
     Dosage: 25-400 MG
     Route: 048
     Dates: start: 20030415
  5. PAXIL [Concomitant]
     Route: 048
  6. REMERON [Concomitant]
     Dosage: 40 - 45 MG
     Route: 048
  7. PREVACID [Concomitant]
     Route: 065
  8. VICODIN [Concomitant]
     Indication: PAIN
     Route: 048
  9. LEVBID [Concomitant]
     Route: 048
  10. NAPROSYN [Concomitant]
     Route: 065
  11. LISINOPRIL [Concomitant]
     Dosage: 10 - 40 MG
     Route: 048
  12. AMARYL [Concomitant]
     Indication: DIABETES MELLITUS
     Dosage: 1-6 MG
     Route: 065
  13. ATIVAN [Concomitant]
     Indication: ANXIETY
     Dosage: 1.5-2.0 MG
     Route: 048
  14. INSULIN [Concomitant]
     Dosage: 10 ML AS DIRECTED
     Route: 058
  15. PROTONIX [Concomitant]
     Route: 048
  16. COMPAZINE [Concomitant]
     Indication: NAUSEA
     Route: 065
  17. ZOFRAN [Concomitant]
     Indication: NAUSEA
     Route: 042
  18. PHENERGAN [Concomitant]
     Indication: NAUSEA
     Route: 030
  19. FENTANYL [Concomitant]
     Indication: PAIN
     Dosage: 25-225 MCG
     Route: 042
  20. ULTRAM [Concomitant]
     Indication: PAIN
     Route: 048
  21. COLACE [Concomitant]
     Indication: CONSTIPATION
     Dosage: 100-200 MG
     Route: 048
  22. REGLAN [Concomitant]
     Indication: NAUSEA
     Route: 042
  23. INTERFERON [Concomitant]
     Route: 065
  24. REBETOL [Concomitant]
     Route: 065

REACTIONS (26)
  - ABDOMINAL PAIN [None]
  - BACK PAIN [None]
  - BLEPHARITIS [None]
  - CERVICOBRACHIAL SYNDROME [None]
  - CHALAZION [None]
  - CHEST PAIN [None]
  - DEHYDRATION [None]
  - DIABETES MELLITUS [None]
  - DIVERTICULITIS [None]
  - DYSPNOEA [None]
  - GASTROENTERITIS [None]
  - HYPERTENSION [None]
  - HYPERVENTILATION [None]
  - LUNG NEOPLASM [None]
  - MYALGIA [None]
  - PANCREATITIS [None]
  - PERIODIC LIMB MOVEMENT DISORDER [None]
  - PRESBYOPIA [None]
  - PYREXIA [None]
  - RADICULITIS LUMBOSACRAL [None]
  - RADIUS FRACTURE [None]
  - RENAL FAILURE ACUTE [None]
  - RETINAL VASCULAR DISORDER [None]
  - SKIN CANDIDA [None]
  - TESTICULAR PAIN [None]
  - VIRAL INFECTION [None]
